FAERS Safety Report 19591444 (Version 1)
Quarter: 2021Q3

REPORT INFORMATION
  Report Type: Report from Study
  Country: US (occurrence: US)
  Receive Date: 20210721
  Receipt Date: 20210721
  Transmission Date: 20211014
  Serious: Yes (Hospitalization, Other)
  Sender: FDA-Public Use
  Company Number: US-EISAI MEDICAL RESEARCH-EC-2021-095680

PATIENT
  Age: 85 Year
  Sex: Male

DRUGS (2)
  1. LENVIMA [Suspect]
     Active Substance: LENVATINIB
     Indication: THYROID CANCER
     Route: 048
     Dates: start: 20210629, end: 20210706
  2. LENVIMA [Suspect]
     Active Substance: LENVATINIB
     Route: 048
     Dates: start: 20210719

REACTIONS (11)
  - Pneumonia [Unknown]
  - Infection [Unknown]
  - Cardiac dysfunction [Unknown]
  - Dysarthria [Unknown]
  - Lethargy [Unknown]
  - Pyrexia [Recovering/Resolving]
  - Fall [Unknown]
  - Blood pressure increased [Not Recovered/Not Resolved]
  - Decreased appetite [Unknown]
  - Hypersomnia [Unknown]
  - Metastases to bone [Unknown]

NARRATIVE: CASE EVENT DATE: 202107
